FAERS Safety Report 7295240-0 (Version None)
Quarter: 2011Q1

REPORT INFORMATION
  Report Type: 
  Country: None (occurrence: None)
  Receive Date: 20110216
  Receipt Date: 20110210
  Transmission Date: 20110831
  Serious: No
  Sender: FDA-Public Use
  Company Number: A0906296A

PATIENT
  Sex: Female

DRUGS (1)
  1. VOTRIENT [Suspect]
     Dosage: 800MG PER DAY
     Route: 048
     Dates: start: 20110107

REACTIONS (8)
  - DIARRHOEA [None]
  - DECREASED APPETITE [None]
  - ASTHENIA [None]
  - FATIGUE [None]
  - NAUSEA [None]
  - BEDRIDDEN [None]
  - DECREASED INTEREST [None]
  - DYSPHONIA [None]
